FAERS Safety Report 8675936 (Version 2)
Quarter: 2012Q4

REPORT INFORMATION
  Report Type: 
  Country: MX (occurrence: MX)
  Receive Date: 20120720
  Receipt Date: 20121017
  Transmission Date: 20130627
  Serious: Yes (Hospitalization, Other)
  Sender: FDA-Public Use
  Company Number: PHHY2012MX062163

PATIENT
  Age: 65 None
  Sex: Male

DRUGS (2)
  1. CO-DIOVAN [Suspect]
     Indication: HYPERTENSION
     Dosage: 1 tablet (160/12.5 mg), daily
     Dates: start: 2007, end: 20120720
  2. ZINTREPID [Concomitant]
     Indication: BLOOD CHOLESTEROL INCREASED
     Dosage: 1 tablet, daily

REACTIONS (1)
  - Anal fistula [Recovered/Resolved]
